FAERS Safety Report 9549685 (Version 1)
Quarter: 2013Q3

REPORT INFORMATION
  Report Type: Spontaneous
  Country: US (occurrence: None)
  Receive Date: 20130719
  Receipt Date: 20130719
  Transmission Date: 20140515
  Serious: Yes (Other)
  Sender: FDA-Public Use
  Company Number: 2012BAX022105

PATIENT
  Age: 57 Year
  Sex: Male

DRUGS (40)
  1. CYCLOPHOSPHAMIDE [Suspect]
     Indication: CHRONIC LYMPHOCYTIC LEUKAEMIA
     Route: 042
     Dates: start: 20120518
  2. FLUDARABINE PHOSPHATE [Suspect]
     Indication: CHRONIC LYMPHOCYTIC LEUKAEMIA
     Route: 042
     Dates: start: 20120518
  3. SULFAMETHOXAZOLE/TRIMETHOPRIM [Concomitant]
  4. ACICLOVIR [Concomitant]
  5. PROCHLORPERAZINE [Concomitant]
  6. MAGNESIUM HYDROXIDE [Concomitant]
  7. LACTULOSE [Concomitant]
  8. LORTAB (PROMETHAZINE HYDROCHLORIDE, PARACETAMOL, HYDROCODONE BITARTRATE) [Concomitant]
  9. OXYCODONE [Concomitant]
  10. METRONIDAZOLE [Concomitant]
  11. VANCOMYCIN [Concomitant]
  12. CIPROFLOXACIN [Concomitant]
  13. FLUCONAZOLE [Concomitant]
  14. METHYLPREDNISOLONE [Concomitant]
  15. DIPHENHYDRAMINE [Suspect]
  16. PARACETAMOL [Concomitant]
  17. ONDANSETRON [Concomitant]
  18. FAMOTIDINE [Concomitant]
  19. METHYLPREDNISOLONE [Concomitant]
  20. ASPIRIN (ACETYLSALICYLIC ACID) [Concomitant]
  21. ANUSOL (PRAMOCAINE HYDROCHLORIDE, ZINC OZIDE, PARAFFIN, LIQUID) [Concomitant]
  22. LOPERAMIDE [Concomitant]
  23. MORPHINE [Concomitant]
  24. NORMAL SALINE (SODIUM CHLORIDE) [Concomitant]
  25. LORAZEPAM [Concomitant]
  26. PIPERACILLIN/TAZOBACTAM (PIPERACILLIN SODIUM, TAZOBACTAM SODIUM) [Concomitant]
  27. CEFTOXITIN [Concomitant]
  28. MIDAZOLAM [Concomitant]
  29. LIDOCAINE [Concomitant]
  30. PROPOFOL [Concomitant]
  31. FENTANYL [Concomitant]
  32. ROCURONIUM [Concomitant]
  33. PHENYLEPHRINE [Concomitant]
  34. LACTATED RINGER^S (SODIUM LACTATE, POTASSIUM CHLORIDE, SODIUM CHLROIDE, CALCIUM CHLORIDE DIHYDRATE [Concomitant]
  35. GLYCOPYRROLATE (GLYCOPYRRONIUM) [Concomitant]
  36. ACETAMINOPHEN/OXYCODONE (PARACETAMOL, OXYCODONE HYDROCHLORIDE) [Concomitant]
  37. KETOROLAC [Concomitant]
  38. DOCUSATE [Concomitant]
  39. HEPARIN [Concomitant]
  40. ZOLPIDEM [Concomitant]

REACTIONS (1)
  - Neutropenia [None]
